FAERS Safety Report 23435414 (Version 1)
Quarter: 2024Q1

REPORT INFORMATION
  Report Type: Spontaneous
  Country: IR (occurrence: IR)
  Receive Date: 20240124
  Receipt Date: 20240124
  Transmission Date: 20240410
  Serious: Yes (Death)
  Sender: FDA-Public Use
  Company Number: IR-STRIDES ARCOLAB LIMITED-2024SP000840

PATIENT
  Age: 35 Year
  Sex: Male

DRUGS (11)
  1. ETOPOSIDE [Suspect]
     Active Substance: ETOPOSIDE
     Indication: Testicular germ cell tumour
     Dosage: 100 MILLIGRAM/SQ. METER, CYCLICAL (DAYS 1-5, FOR EVERY 21 DAYS)
     Route: 065
  2. BLEOMYCIN [Suspect]
     Active Substance: BLEOMYCIN SULFATE
     Indication: Testicular germ cell tumour
     Dosage: UNK, CYCLICAL (FOR EVERY 21 DAYS, ON DAYS 1, 8, 15)
     Route: 065
  3. GEMCITABINE [Suspect]
     Active Substance: GEMCITABINE
     Indication: Testicular germ cell tumour
     Dosage: 1000 MILLIGRAM/SQ. METER, CYCLICAL (DAYS 1, 8)
     Route: 065
  4. OXALIPLATIN [Suspect]
     Active Substance: OXALIPLATIN
     Indication: Testicular germ cell tumour
     Dosage: 130 MILLIGRAM/SQ. METER, CYCLICAL (DAY 1)
     Route: 065
  5. CISPLATIN [Suspect]
     Active Substance: CISPLATIN
     Indication: Testicular germ cell tumour
     Dosage: 20 MILLIGRAM/SQ. METER, CYCLICAL (DAYS 1-5, FOR EVERY 21 DAYS CYCLE)
     Route: 065
  6. CISPLATIN [Suspect]
     Active Substance: CISPLATIN
     Dosage: UNK, CYCLICAL
     Route: 065
  7. CISPLATIN [Suspect]
     Active Substance: CISPLATIN
     Dosage: UNK, CYCLICAL (FOUR CYCLES OF TIP REGIMEN)
     Route: 065
  8. PACLITAXEL [Concomitant]
     Active Substance: PACLITAXEL
     Indication: Testicular germ cell tumour
     Dosage: UNK, CYCLICAL ( (FOUR CYCLES OF TIP REGIMEN)
     Route: 065
  9. IFOSFAMIDE [Concomitant]
     Active Substance: IFOSFAMIDE
     Indication: Testicular germ cell tumour
     Dosage: UNK, CYCLICAL
     Route: 065
  10. IFOSFAMIDE [Concomitant]
     Active Substance: IFOSFAMIDE
     Dosage: UNK, CYCLICAL (FOUR CYCLES OF TIP REGIMEN)
     Route: 065
  11. VINBLASTINE [Concomitant]
     Active Substance: VINBLASTINE
     Indication: Testicular germ cell tumour
     Dosage: UNK, CYCLICAL
     Route: 065

REACTIONS (2)
  - Metastases to lung [Fatal]
  - Drug ineffective [Fatal]
